FAERS Safety Report 6760554-7 (Version None)
Quarter: 2010Q2

REPORT INFORMATION
  Report Type: 
  Country: None (occurrence: None)
  Receive Date: 20100607
  Receipt Date: 20100607
  Transmission Date: 20101027
  Serious: Yes (Hospitalization)
  Sender: FDA-Public Use
  Company Number: None

PATIENT
  Age: 54 Year
  Sex: Male
  Weight: 77.1 kg

DRUGS (11)
  1. AUGMENTIN '125' [Suspect]
     Indication: EAR INFECTION
     Dosage: 875 BID
  2. PLAVIX [Concomitant]
  3. LISINOPRIL [Concomitant]
  4. SIMVASTATIN [Concomitant]
  5. TEKTURNA [Concomitant]
  6. ASPIRIN [Concomitant]
  7. ADVAIR DISKUS 100/50 [Concomitant]
  8. SPIRIVA [Concomitant]
  9. AMLODIPINE [Concomitant]
  10. SINGULAIR [Concomitant]
  11. SUCRALAFATE [Concomitant]

REACTIONS (4)
  - EAR HAEMORRHAGE [None]
  - GENERALISED ERYTHEMA [None]
  - MOUTH HAEMORRHAGE [None]
  - PETECHIAE [None]
